FAERS Safety Report 5070342-8 (Version None)
Quarter: 2006Q3

REPORT INFORMATION
  Report Type: 
  Country: None (occurrence: None)
  Receive Date: 20060731
  Receipt Date: 20060718
  Transmission Date: 20061208
  Serious: Yes (Death)
  Sender: FDA-Public Use
  Company Number: 2006051294

PATIENT
  Age: 63 Year
  Sex: Male
  Weight: 71 kg

DRUGS (2)
  1. SUTENT [Suspect]
     Indication: RENAL CANCER METASTATIC
     Dosage: 50 MG (50 MG, 1 IN 1 D); ORAL
     Route: 048
     Dates: start: 20060322, end: 20060410
  2. FENTANYL [Concomitant]

REACTIONS (30)
  - ACTIVATED PARTIAL THROMBOPLASTIN TIME PROLONGED [None]
  - ANISOCYTOSIS [None]
  - BLOOD CHLORIDE DECREASED [None]
  - BLOOD GLUCOSE INCREASED [None]
  - BLOOD PHOSPHORUS INCREASED [None]
  - BLOOD POTASSIUM INCREASED [None]
  - BLOOD SODIUM DECREASED [None]
  - COAGULATION FACTOR V LEVEL DECREASED [None]
  - COAGULATION FACTOR VII LEVEL DECREASED [None]
  - COAGULATION FACTOR X LEVEL DECREASED [None]
  - COMA [None]
  - CYTOLYTIC HEPATITIS [None]
  - GENERAL PHYSICAL HEALTH DETERIORATION [None]
  - HAEMATOCRIT DECREASED [None]
  - HAEMOGLOBIN DECREASED [None]
  - HEPATIC FAILURE [None]
  - HEPATIC ISCHAEMIA [None]
  - HEPATITIS [None]
  - HEPATITIS FULMINANT [None]
  - LYMPHOCYTE COUNT DECREASED [None]
  - MEAN PLATELET VOLUME DECREASED [None]
  - MULTI-ORGAN FAILURE [None]
  - PLEURAL EFFUSION [None]
  - PROTHROMBIN LEVEL INCREASED [None]
  - PROTHROMBIN TIME PROLONGED [None]
  - PROTHROMBIN TIME SHORTENED [None]
  - PULMONARY EMBOLISM [None]
  - RED BLOOD CELL COUNT DECREASED [None]
  - RENAL FAILURE [None]
  - THERAPY NON-RESPONDER [None]
